FAERS Safety Report 15282740 (Version 1)
Quarter: 2018Q3

REPORT INFORMATION
  Report Type: Spontaneous
  Country: GB (occurrence: GB)
  Receive Date: 20180816
  Receipt Date: 20180816
  Transmission Date: 20181010
  Serious: Yes (Other)
  Sender: FDA-Public Use
  Company Number: GB-TEVA-2018-GB-941651

PATIENT
  Sex: Female
  Weight: 47 kg

DRUGS (3)
  1. BENDROFLUMETHIAZIDE [Suspect]
     Active Substance: BENDROFLUMETHIAZIDE
     Route: 065
  2. PARACETAMOL [Suspect]
     Active Substance: ACETAMINOPHEN
     Route: 065
  3. ENALAPRIL [Suspect]
     Active Substance: ENALAPRIL
     Route: 065

REACTIONS (3)
  - Hyperhidrosis [Unknown]
  - Flushing [Unknown]
  - Feeling hot [Unknown]
